FAERS Safety Report 6705478-6 (Version None)
Quarter: 2010Q2

REPORT INFORMATION
  Report Type: 
  Country: None (occurrence: None)
  Receive Date: 20100503
  Receipt Date: 20100421
  Transmission Date: 20101027
  Serious: No
  Sender: FDA-Public Use
  Company Number: US-BIOGENIDEC-2010BI013896

PATIENT
  Sex: Female

DRUGS (3)
  1. TYSABRI [Suspect]
     Indication: MULTIPLE SCLEROSIS
     Route: 042
     Dates: start: 20080325, end: 20080722
  2. TYSABRI [Suspect]
     Route: 042
     Dates: start: 20080901
  3. TYSABRI [Suspect]
     Route: 042
     Dates: start: 20090707

REACTIONS (5)
  - AMNESIA [None]
  - BLINDNESS [None]
  - HYPOAESTHESIA [None]
  - MULTIPLE SCLEROSIS RELAPSE [None]
  - PARALYSIS [None]
